FAERS Safety Report 12327670 (Version 1)
Quarter: 2016Q2

REPORT INFORMATION
  Report Type: Spontaneous
  Country: JP (occurrence: JP)
  Receive Date: 20160503
  Receipt Date: 20160503
  Transmission Date: 20160815
  Serious: Yes (Hospitalization, Other)
  Sender: FDA-Public Use
  Company Number: ADR-2006-2983

PATIENT
  Sex: Male

DRUGS (2)
  1. GABALON [Suspect]
     Active Substance: BACLOFEN
     Route: 037
     Dates: start: 20030117, end: 20060112
  2. PIRETAZOL [Suspect]
     Active Substance: CEFMETAZOLE SODIUM

REACTIONS (7)
  - Peritonitis [Not Recovered/Not Resolved]
  - Pollakiuria [Not Recovered/Not Resolved]
  - Vasomotor rhinitis [Not Recovered/Not Resolved]
  - Anastomotic leak [Not Recovered/Not Resolved]
  - Arthritis [Not Recovered/Not Resolved]
  - Dysphagia [Not Recovered/Not Resolved]
  - Neurogenic bladder [Not Recovered/Not Resolved]
